FAERS Safety Report 16064032 (Version 1)
Quarter: 2019Q1

REPORT INFORMATION
  Report Type: Spontaneous
  Country: US (occurrence: US)
  Receive Date: 20190312
  Receipt Date: 20190312
  Transmission Date: 20190418
  Serious: No
  Sender: FDA-Public Use
  Company Number: US-TAKEDA-2019TUS012865

PATIENT
  Sex: Female
  Weight: 59.86 kg

DRUGS (1)
  1. TRINTELLIX [Suspect]
     Active Substance: VORTIOXETINE HYDROBROMIDE
     Indication: DEPRESSION
     Dosage: 5 MILLIGRAM, QD
     Route: 048
     Dates: start: 201901, end: 20190306

REACTIONS (2)
  - Vitreous detachment [Not Recovered/Not Resolved]
  - Dry eye [Not Recovered/Not Resolved]
